FAERS Safety Report 10148842 (Version 3)
Quarter: 2014Q2

REPORT INFORMATION
  Report Type: Report from Study
  Country: BR (occurrence: BR)
  Receive Date: 20140502
  Receipt Date: 20140520
  Transmission Date: 20141212
  Serious: Yes (Hospitalization)
  Sender: FDA-Public Use
  Company Number: BR-ROCHE-1392169

PATIENT
  Age: 56 Year
  Sex: Female
  Weight: 42 kg

DRUGS (4)
  1. RITUXIMAB [Suspect]
     Indication: B-CELL LYMPHOMA
     Dosage: DATE OF MOST RECENT DOSE PRIOR TO EVENT ONSET : 24/APR/2014,?FREQUENCY AS PER PROTOCOL : DAY 1 CYCLE
     Route: 042
     Dates: start: 20140424
  2. VINCRISTINE [Suspect]
     Indication: B-CELL LYMPHOMA
     Route: 065
  3. ALLOPURINOL [Concomitant]
     Indication: PROPHYLAXIS
     Route: 048
     Dates: start: 20140423
  4. ALBENDAZOLE [Concomitant]
     Indication: PROPHYLAXIS
     Route: 048
     Dates: start: 20140423

REACTIONS (2)
  - Hyponatraemia [Recovered/Resolved]
  - Neutropenia [Recovered/Resolved]
